FAERS Safety Report 16279956 (Version 1)
Quarter: 2019Q2

REPORT INFORMATION
  Report Type: Spontaneous
  Country: US (occurrence: US)
  Receive Date: 20190507
  Receipt Date: 20190507
  Transmission Date: 20190711
  Serious: Yes (Life-Threatening, Other)
  Sender: FDA-Public Use
  Company Number: US-AUROBINDO-AUR-APL-2019-024544

PATIENT

DRUGS (1)
  1. BUPIVACAINE HYDROCHLORIDE. [Suspect]
     Active Substance: BUPIVACAINE HYDROCHLORIDE
     Indication: PAIN
     Dosage: UNK
     Route: 008

REACTIONS (2)
  - Sinus arrest [Recovered/Resolved]
  - Atrioventricular block complete [Recovered/Resolved]
